FAERS Safety Report 8620222-3 (Version None)
Quarter: 2012Q3

REPORT INFORMATION
  Report Type: 
  Country: None (occurrence: None)
  Receive Date: 20120824
  Receipt Date: 20120820
  Transmission Date: 20120928
  Serious: Yes (Hospitalization)
  Sender: FDA-Public Use
  Company Number: PHFR2012GB004012

PATIENT
  Sex: Male

DRUGS (2)
  1. CLOZARIL [Suspect]
     Dosage: 550 MG, QD
  2. CLOZARIL [Suspect]
     Indication: SCHIZOPHRENIA
     Dosage: 650 MG, DAILY
     Route: 048
     Dates: start: 20010107

REACTIONS (8)
  - PNEUMONIA [None]
  - NEUTROPHIL COUNT INCREASED [None]
  - SQUAMOUS CELL CARCINOMA [None]
  - LUNG NEOPLASM MALIGNANT [None]
  - ANTIPSYCHOTIC DRUG LEVEL INCREASED [None]
  - WHITE BLOOD CELL COUNT INCREASED [None]
  - SOMNOLENCE [None]
  - SEDATION [None]
